FAERS Safety Report 9397929 (Version 2)
Quarter: 2013Q3

REPORT INFORMATION
  Report Type: Spontaneous
  Country: GB (occurrence: None)
  Receive Date: 20130709
  Receipt Date: 20130712
  Transmission Date: 20140515
  Serious: Yes (Other)
  Sender: FDA-Public Use
  Company Number: GER/UKI/13/0030394

PATIENT
  Age: 43 Year
  Sex: Male

DRUGS (3)
  1. MONTELUKAST [Suspect]
     Indication: PRODUCT USED FOR UNKNOWN INDICATION
     Dosage: 1  IN  1 D
  2. SALMETEROL AND FLUTICASONE [Suspect]
     Indication: PRODUCT USED FOR UNKNOWN INDICATION
     Dosage: 2 DOSAGE FORMS, 2 IN 1 D, NASAL
     Route: 045
  3. VENTOLIN (SALBUTAMOL) [Suspect]
     Indication: PRODUCT USED FOR UNKNOWN INDICATION
     Dosage: 1 DOSAGE FORMS, 1 IN 1 AS REQUIRED, NASAL
     Route: 045

REACTIONS (6)
  - Pigment dispersion syndrome [None]
  - Blebitis [None]
  - Tenon^s cyst [None]
  - Diplopia [None]
  - Dysaesthesia [None]
  - Pigmentary glaucoma [None]
